FAERS Safety Report 10623131 (Version 2)
Quarter: 2014Q4

REPORT INFORMATION
  Report Type: Spontaneous
  Country: US (occurrence: US)
  Receive Date: 20141203
  Receipt Date: 20141213
  Transmission Date: 20150529
  Serious: No
  Sender: FDA-Public Use
  Company Number: DE-ASTRAZENECA-2014SE92234

PATIENT
  Sex: Female

DRUGS (1)
  1. VIMOVO [Suspect]
     Active Substance: ESOMEPRAZOLE MAGNESIUM\NAPROXEN
     Indication: PLANTAR FASCIITIS
     Route: 048
     Dates: start: 201411, end: 20141117

REACTIONS (6)
  - Rash [Recovered/Resolved]
  - Intentional product misuse [Recovered/Resolved]
  - Muscle twitching [Recovered/Resolved]
  - Groin pain [Recovered/Resolved]
  - Skin odour abnormal [Recovered/Resolved]
  - Product use issue [Recovered/Resolved]

NARRATIVE: CASE EVENT DATE: 201411
